FAERS Safety Report 4929941-3 (Version None)
Quarter: 2006Q1

REPORT INFORMATION
  Report Type: 
  Country: None (occurrence: None)
  Receive Date: 20060301
  Receipt Date: 20041014
  Transmission Date: 20060701
  Serious: Yes (Hospitalization)
  Sender: FDA-Public Use
  Company Number: US-MERCK-0410USA02358

PATIENT
  Age: 47 Year
  Sex: Male
  Weight: 80 kg

DRUGS (15)
  1. VIOXX [Suspect]
     Indication: BACK PAIN
     Route: 048
     Dates: start: 20000410, end: 20011201
  2. VIOXX [Suspect]
     Route: 048
  3. VIOXX [Suspect]
     Route: 048
  4. VIOXX [Suspect]
     Route: 048
  5. VIOXX [Suspect]
     Indication: ARTHRALGIA
     Route: 048
     Dates: start: 20000410, end: 20011201
  6. VIOXX [Suspect]
     Route: 048
  7. VIOXX [Suspect]
     Route: 048
  8. VIOXX [Suspect]
     Route: 048
  9. VICODIN [Concomitant]
     Route: 065
     Dates: start: 19900101
  10. IBUPROFEN [Concomitant]
     Route: 065
     Dates: start: 19900101
  11. ZOLOFT [Concomitant]
     Route: 065
     Dates: start: 19900101
  12. HYDROCODONE HYDROCHLORIDE [Concomitant]
     Route: 065
     Dates: start: 19900101
  13. QUININE [Concomitant]
     Route: 065
     Dates: start: 19900101
  14. SKELAXIN [Concomitant]
     Route: 065
     Dates: start: 19900101
  15. ELAVIL [Concomitant]
     Route: 065
     Dates: start: 19900101

REACTIONS (17)
  - ABSCESS [None]
  - ANXIETY [None]
  - BLOOD TRIGLYCERIDES INCREASED [None]
  - CARDIAC FAILURE CONGESTIVE [None]
  - CORONARY ARTERY DISEASE [None]
  - DEPRESSION [None]
  - DIABETES MELLITUS [None]
  - DRUG INEFFECTIVE [None]
  - HEART DISEASE CONGENITAL [None]
  - HYPERLIPIDAEMIA [None]
  - INCREASED TENDENCY TO BRUISE [None]
  - MYOCARDIAL INFARCTION [None]
  - RESTLESS LEGS SYNDROME [None]
  - SEXUAL DYSFUNCTION [None]
  - SLEEP DISORDER [None]
  - SWEAT GLAND INFECTION [None]
  - WEIGHT INCREASED [None]
